FAERS Safety Report 8961048 (Version 1)
Quarter: 2012Q4

REPORT INFORMATION
  Report Type: 
  Country: DE (occurrence: DE)
  Receive Date: 20121212
  Receipt Date: 20121212
  Transmission Date: 20130627
  Serious: Yes (Other)
  Sender: FDA-Public Use
  Company Number: DE-OTSUKA-EU-2012-10395

PATIENT
  Sex: Male

DRUGS (1)
  1. PLETAL [Suspect]
     Dosage: 50 Mg milligram(s), unknown
     Dates: start: 20090522, end: 20101209

REACTIONS (2)
  - Renal failure [Unknown]
  - Diarrhoea [Unknown]
